FAERS Safety Report 4530202-5 (Version None)
Quarter: 2004Q4

REPORT INFORMATION
  Report Type: 
  Country: None (occurrence: None)
  Receive Date: 20041217
  Receipt Date: 20041021
  Transmission Date: 20050328
  Serious: Yes (Congenital Anomaly)
  Sender: FDA-Public Use
  Company Number: 200412422DE

PATIENT
  Sex: Male

DRUGS (2)
  1. LANTUS [Suspect]
     Indication: DIABETES MELLITUS INSULIN-DEPENDENT
     Route: 064
     Dates: start: 20040131, end: 20040913
  2. NOVORAPID [Concomitant]
     Indication: DIABETES MELLITUS
     Route: 064
     Dates: start: 20040130, end: 20040913

REACTIONS (7)
  - CONGENITAL CARDIOVASCULAR ANOMALY [None]
  - DRUG EXPOSURE DURING PREGNANCY [None]
  - FOETAL MACROSOMIA [None]
  - HYPOGLYCAEMIA NEONATAL [None]
  - POLYHYDRAMNIOS [None]
  - RESPIRATORY DISORDER NEONATAL [None]
  - TRICUSPID VALVE INCOMPETENCE [None]
